FAERS Safety Report 7443045-X (Version None)
Quarter: 2011Q2

REPORT INFORMATION
  Report Type: 
  Country: None (occurrence: None)
  Receive Date: 20110428
  Receipt Date: 20110420
  Transmission Date: 20111010
  Serious: Yes (Hospitalization)
  Sender: FDA-Public Use
  Company Number: NL-MEDIMMUNE-MEDI-0013137

PATIENT
  Sex: Female
  Weight: 7 kg

DRUGS (2)
  1. SYNAGIS [Suspect]
     Route: 030
     Dates: start: 20110420
  2. SYNAGIS [Suspect]
     Route: 030
     Dates: start: 20100908, end: 20110323

REACTIONS (3)
  - OXYGEN SATURATION DECREASED [None]
  - DYSPNOEA [None]
  - RESPIRATORY TRACT INFECTION [None]
